FAERS Safety Report 5504050-3 (Version None)
Quarter: 2007Q4

REPORT INFORMATION
  Report Type: 
  Country: None (occurrence: None)
  Receive Date: 20071101
  Receipt Date: 20071030
  Transmission Date: 20080405
  Serious: Yes (Hospitalization, Other)
  Sender: FDA-Public Use
  Company Number: US-BRISTOL-MYERS SQUIBB COMPANY-13963046

PATIENT
  Sex: Female

DRUGS (1)
  1. DASATINIB [Suspect]
     Indication: BREAST CANCER
     Dates: start: 20070928

REACTIONS (6)
  - DEHYDRATION [None]
  - DIARRHOEA [None]
  - HEADACHE [None]
  - LYMPHADENOPATHY [None]
  - ORBITAL OEDEMA [None]
  - PNEUMONIA [None]
